FAERS Safety Report 18493602 (Version 4)
Quarter: 2020Q4

REPORT INFORMATION
  Report Type: Report from Study
  Country: US (occurrence: US)
  Receive Date: 20201112
  Receipt Date: 20201215
  Transmission Date: 20210114
  Serious: Yes (Other)
  Sender: FDA-Public Use
  Company Number: US-TAKEDA-2020TUS048115

PATIENT
  Sex: Female

DRUGS (2)
  1. VEDOLIZUMAB [Suspect]
     Active Substance: VEDOLIZUMAB
     Indication: COLITIS ULCERATIVE
     Dosage: UNK
     Route: 065
  2. VEDOLIZUMAB [Suspect]
     Active Substance: VEDOLIZUMAB
     Indication: CROHN^S DISEASE
     Dosage: 300 MILLIGRAM, Q4WEEKS
     Route: 042

REACTIONS (4)
  - Infection [Unknown]
  - Colitis ulcerative [Unknown]
  - Off label use [Unknown]
  - Crohn^s disease [Unknown]
